FAERS Safety Report 4560901-0 (Version None)
Quarter: 2005Q1

REPORT INFORMATION
  Report Type: 
  Country: None (occurrence: None)
  Receive Date: 20050126
  Receipt Date: 20050118
  Transmission Date: 20050727
  Serious: Yes (Hospitalization)
  Sender: FDA-Public Use
  Company Number: US-JNJFOC-20050104875

PATIENT
  Sex: Male
  Weight: 81.65 kg

DRUGS (2)
  1. DURAGESIC [Suspect]
     Route: 062
  2. DILAUDID [Concomitant]
     Route: 049

REACTIONS (2)
  - APPLICATION SITE ERYTHEMA [None]
  - RENAL CELL CARCINOMA STAGE UNSPECIFIED [None]
